FAERS Safety Report 15814570 (Version 6)
Quarter: 2019Q4

REPORT INFORMATION
  Report Type: Report from Study
  Country: US (occurrence: US)
  Receive Date: 20190111
  Receipt Date: 20191105
  Transmission Date: 20200122
  Serious: Yes (Hospitalization)
  Sender: FDA-Public Use
  Company Number: US-B.I. PHARMACEUTICALS,INC./RIDGEFIELD-2018-BI-048268

PATIENT
  Age: 74 Year
  Sex: Female

DRUGS (1)
  1. OFEV [Suspect]
     Active Substance: NINTEDANIB
     Indication: IDIOPATHIC PULMONARY FIBROSIS
     Route: 048
     Dates: start: 20180824, end: 20190117

REACTIONS (15)
  - Nausea [Not Recovered/Not Resolved]
  - Haemorrhoids [Recovered/Resolved]
  - Diarrhoea [Unknown]
  - Gastrointestinal haemorrhage [Unknown]
  - Productive cough [Unknown]
  - Weight decreased [Unknown]
  - Pneumonia [Recovered/Resolved]
  - Pneumonia [Unknown]
  - Cough [Recovered/Resolved]
  - Decreased appetite [Unknown]
  - Crohn^s disease [Unknown]
  - Seasonal allergy [Unknown]
  - Cough [Unknown]
  - Abdominal pain upper [Unknown]
  - Rectal haemorrhage [Recovered/Resolved]

NARRATIVE: CASE EVENT DATE: 20190124
